FAERS Safety Report 24141880 (Version 1)
Quarter: 2024Q3

REPORT INFORMATION
  Report Type: Spontaneous
  Country: FR (occurrence: FR)
  Receive Date: 20240726
  Receipt Date: 20240726
  Transmission Date: 20241016
  Serious: Yes (Death, Other)
  Sender: RANBAXY
  Company Number: FR-AFSSAPS-MP2024000775

PATIENT
  Sex: Male

DRUGS (2)
  1. MIDAZOLAM [Suspect]
     Active Substance: MIDAZOLAM
     Indication: Palliative sedation
     Dosage: NOT COMMUNICATED (HIGHER THAN THE PRESCRIBED 20MG/24H)
     Route: 058
     Dates: start: 20240421, end: 20240421
  2. MORPHINE [Suspect]
     Active Substance: MORPHINE
     Indication: Palliative sedation
     Dosage: NOT COMMUNICATED (HIGHER THAN PRESCRIBED OF 30MG/24H)
     Route: 058
     Dates: start: 20240421, end: 20240421

REACTIONS (4)
  - Accidental overdose [Fatal]
  - Respiratory failure [Fatal]
  - Device use error [Fatal]
  - Incorrect dose administered by device [Fatal]

NARRATIVE: CASE EVENT DATE: 20240421
